FAERS Safety Report 9355690 (Version 1)
Quarter: 2013Q2

REPORT INFORMATION
  Report Type: Spontaneous
  Country: DK (occurrence: FR)
  Receive Date: 20130619
  Receipt Date: 20130619
  Transmission Date: 20140414
  Serious: Yes (Congenital Anomaly)
  Sender: FDA-Public Use
  Company Number: FR-FRI-1000045985

PATIENT
  Age: 0 Year
  Sex: Male
  Weight: 2.9 kg

DRUGS (2)
  1. CITALOPRAM [Suspect]
     Dosage: 20 MG
     Route: 064
     Dates: end: 20130217
  2. LARGACTIL [Suspect]
     Dosage: 25 MG
     Route: 064
     Dates: end: 20130217

REACTIONS (2)
  - Oesophageal atresia [Recovered/Resolved with Sequelae]
  - Foetal exposure during pregnancy [Recovered/Resolved]
